FAERS Safety Report 8713027 (Version 7)
Quarter: 2013Q4

REPORT INFORMATION
  Report Type: Spontaneous
  Country: US (occurrence: US)
  Receive Date: 20120808
  Receipt Date: 20131008
  Transmission Date: 20140711
  Serious: Yes (Other)
  Sender: FDA-Public Use
  Company Number: US-JNJFOC-20111207827

PATIENT
  Sex: Female

DRUGS (17)
  1. TOPAMAX [Suspect]
     Indication: MIGRAINE
     Route: 048
     Dates: start: 2006
  2. IBUPROFEN [Suspect]
     Indication: HEADACHE
     Route: 065
     Dates: start: 20080609
  3. TYLENOL WITH CODINE [Suspect]
     Indication: HEADACHE
     Route: 048
  4. LYRICA [Suspect]
     Indication: HEADACHE
     Route: 065
  5. BUTALBITAL/APAP/CAFFEINE [Suspect]
     Indication: PRODUCT USED FOR UNKNOWN INDICATION
     Route: 065
  6. COMPAZINE [Suspect]
     Indication: VOMITING
     Route: 065
  7. COMPAZINE [Suspect]
     Indication: NAUSEA
     Route: 065
  8. ZOFRAN [Suspect]
     Indication: PRODUCT USED FOR UNKNOWN INDICATION
     Route: 065
  9. ALBUTEROL [Suspect]
     Indication: ASTHMA
     Route: 065
  10. SYMBICORT [Suspect]
     Indication: ASTHMA
     Dosage: 2 PUFFS TWICE DAILY.
     Route: 065
  11. TESSALON PERLES [Suspect]
     Indication: COUGH
     Route: 048
  12. EXCEDRIN MIGRAINE [Suspect]
     Indication: HEADACHE
     Route: 065
  13. AMBIEN [Suspect]
     Indication: PRODUCT USED FOR UNKNOWN INDICATION
     Route: 065
  14. METHERGINE [Suspect]
     Indication: PRODUCT USED FOR UNKNOWN INDICATION
     Route: 065
  15. FIORICET [Suspect]
     Indication: PRODUCT USED FOR UNKNOWN INDICATION
     Route: 065
  16. PRENATAL VITAMINS [Concomitant]
     Indication: VITAMIN SUPPLEMENTATION
     Route: 065
  17. REPLIVA [Concomitant]
     Indication: PROPHYLAXIS
     Route: 065

REACTIONS (4)
  - Exposure during pregnancy [Recovered/Resolved]
  - Weight decreased [Unknown]
  - Depression [Not Recovered/Not Resolved]
  - Stress [Unknown]
